FAERS Safety Report 6155068-1 (Version None)
Quarter: 2009Q2

REPORT INFORMATION
  Report Type: 
  Country: None (occurrence: None)
  Receive Date: 20090410
  Receipt Date: 20090401
  Transmission Date: 20091009
  Serious: Yes (Death)
  Sender: FDA-Public Use
  Company Number: 005470

PATIENT
  Age: 93 Year
  Sex: Male

DRUGS (5)
  1. PLETAL [Suspect]
     Indication: ARTERIOSCLEROSIS OBLITERANS
     Dosage: 100 MG, BID ORAL
     Route: 048
     Dates: start: 20080311, end: 20090119
  2. LASIX [Concomitant]
  3. THEOLONG (THEOPHYLLINE) [Concomitant]
  4. GRAMALIL (TIAPRIDE HYDROCHLORIDE) [Concomitant]
  5. PURSENNID (SENNOSIDE) [Concomitant]

REACTIONS (2)
  - ANAEMIA [None]
  - CARDIO-RESPIRATORY ARREST [None]
